FAERS Safety Report 5587990-9 (Version None)
Quarter: 2008Q1

REPORT INFORMATION
  Report Type: 
  Country: None (occurrence: None)
  Receive Date: 20080111
  Receipt Date: 20080108
  Transmission Date: 20080703
  Serious: Yes (Death)
  Sender: FDA-Public Use
  Company Number: PHBS2008US00616

PATIENT
  Age: 47 Year
  Sex: Male

DRUGS (2)
  1. STEROIDS NOS [Concomitant]
     Route: 042
  2. CYCLOSPORINE [Suspect]
     Indication: COLITIS ULCERATIVE
     Dosage: 4 MG/KG/D
     Route: 042

REACTIONS (4)
  - CONVULSION [None]
  - DUODENAL ULCER HAEMORRHAGE [None]
  - LAPAROTOMY [None]
  - SHOCK HAEMORRHAGIC [None]
